FAERS Safety Report 4378132-6 (Version None)
Quarter: 2004Q2

REPORT INFORMATION
  Report Type: 
  Country: None (occurrence: None)
  Receive Date: 20040616
  Receipt Date: 20001124
  Transmission Date: 20050107
  Serious: Yes (Hospitalization, Other)
  Sender: FDA-Public Use
  Company Number: 10618569

PATIENT
  Age: 8 Day
  Sex: Male

DRUGS (5)
  1. ZERIT [Suspect]
     Dosage: EXPOSED TRANSPLACENTALLY PRIOR TO DELIVERY
     Route: 064
  2. EPIVIR [Suspect]
     Dosage: EXPOSURE DURING GESTATION.
     Route: 064
  3. NORVIR [Suspect]
     Dosage: EXPOSED TRANSPLACENTALLY PRIOR TO DELIVERY
     Route: 064
  4. RETROVIR [Suspect]
     Dosage: GIVEN FOR 14 DAYS AFTER BIRTH (OVERDOSAGE DURING 8 DAYS)
  5. EPIVIR [Suspect]

REACTIONS (11)
  - ANAEMIA [None]
  - BLOOD CREATINE PHOSPHOKINASE INCREASED [None]
  - DEVELOPMENTAL DELAY [None]
  - DIFFICULTY IN WALKING [None]
  - DYSPRAXIA [None]
  - MUSCLE ATROPHY [None]
  - OVERDOSE [None]
  - PREGNANCY [None]
  - RESPIRATORY DISTRESS [None]
  - THROMBOCYTOPENIA [None]
  - TRANSAMINASES INCREASED [None]
